FAERS Safety Report 22220565 (Version 1)
Quarter: 2023Q2

REPORT INFORMATION
  Report Type: Spontaneous
  Country: CN (occurrence: None)
  Receive Date: 20230417
  Receipt Date: 20230417
  Transmission Date: 20230722
  Serious: Yes (Hospitalization)
  Sender: FDA-Public Use
  Company Number: CN-ROCHE-3332459

PATIENT
  Age: 54 Year
  Sex: Female
  Weight: 61.5 kg

DRUGS (2)
  1. HERCEPTIN [Suspect]
     Active Substance: TRASTUZUMAB
     Indication: Breast cancer
     Dosage: FORM OF ADMIN. TEXT: POWDER INJECTION
     Route: 041
     Dates: start: 20230403, end: 20230403
  2. DOCETAXEL [Concomitant]
     Active Substance: DOCETAXEL
     Indication: Breast cancer
     Route: 041
     Dates: start: 20230403, end: 20230403

REACTIONS (1)
  - White blood cell count decreased [Recovering/Resolving]

NARRATIVE: CASE EVENT DATE: 20230405
